FAERS Safety Report 5847195-0 (Version None)
Quarter: 2008Q3

REPORT INFORMATION
  Report Type: 
  Country: None (occurrence: None)
  Receive Date: 20080815
  Receipt Date: 20080808
  Transmission Date: 20090109
  Serious: Yes (Disabling, Other)
  Sender: FDA-Public Use
  Company Number: PHEH2008US00867

PATIENT
  Sex: Male

DRUGS (4)
  1. PAMIDRONATE DISODIUM [Suspect]
     Indication: HYPERGAMMAGLOBULINAEMIA BENIGN MONOCLONAL
     Dosage: 90 MG, QMO
     Dates: start: 20010201
  2. PAMIDRONATE DISODIUM [Suspect]
     Dosage: 90 MG, EVERY 1-2 MONTHS
     Dates: start: 20020107, end: 20031113
  3. PAMIDRONATE DISODIUM [Suspect]
     Dosage: 90 MG, UNK
     Dates: start: 20060323, end: 20070716
  4. FORTEO [Concomitant]
     Dosage: UNK
     Dates: start: 20030101

REACTIONS (6)
  - BONE DISORDER [None]
  - DENTAL IMPLANTATION [None]
  - GINGIVAL EROSION [None]
  - HIP SURGERY [None]
  - OSTEONECROSIS [None]
  - RESORPTION BONE INCREASED [None]
